FAERS Safety Report 5535871-9 (Version None)
Quarter: 2007Q4

REPORT INFORMATION
  Report Type: 
  Country: None (occurrence: None)
  Receive Date: 20071206
  Receipt Date: 20071130
  Transmission Date: 20080405
  Serious: Yes (Hospitalization)
  Sender: FDA-Public Use
  Company Number: BE-JNJFOC-20070902719

PATIENT
  Sex: Female
  Weight: 75 kg

DRUGS (6)
  1. GALANTAMINE HYDROBROMIDE [Suspect]
     Indication: DEMENTIA ALZHEIMER'S TYPE
     Route: 048
  2. OMEPRAZOLE [Concomitant]
     Route: 048
  3. COVERSYL [Concomitant]
     Indication: HYPERTENSION
     Route: 048
  4. PLAVIX [Concomitant]
     Route: 048
  5. MOTILIUM [Concomitant]
     Indication: NAUSEA
     Dosage: 10 MG, 3 IN ONE DAY AS NECESSARY
     Route: 048
  6. LAXOBERON [Concomitant]
     Indication: CONSTIPATION
     Route: 048

REACTIONS (5)
  - BRAIN STEM ISCHAEMIA [None]
  - GASTRITIS [None]
  - HYPOVENTILATION [None]
  - NAUSEA [None]
  - VOMITING [None]
